FAERS Safety Report 9492315 (Version 4)
Quarter: 2014Q2

REPORT INFORMATION
  Report Type: Report from Study
  Country: DE (occurrence: DE)
  Receive Date: 20130830
  Receipt Date: 20140422
  Transmission Date: 20141212
  Serious: Yes (Death, Life-Threatening, Other)
  Sender: FDA-Public Use
  Company Number: PHHY2013DE094012

PATIENT
  Age: 72 Year
  Sex: Female
  Weight: 68 kg

DRUGS (26)
  1. ETOPOSIDE [Suspect]
     Indication: ACUTE MYELOID LEUKAEMIA
     Dosage: 175 MG, UNK
     Route: 042
     Dates: start: 20130607, end: 20130609
  2. CYTARABINE [Suspect]
     Indication: ACUTE MYELOID LEUKAEMIA
     Dosage: 175 MG, QD
     Route: 042
     Dates: start: 20130607
  3. IDARUBICIN [Suspect]
     Indication: ACUTE MYELOID LEUKAEMIA
     Dosage: 21 MG, QD
     Route: 042
     Dates: start: 20130607, end: 20130609
  4. GEMTUZUMAB OZOGAMICIN [Suspect]
     Indication: ACUTE MYELOID LEUKAEMIA
     Dosage: 5.2 MG, UNK
     Route: 042
     Dates: start: 20130607, end: 20130607
  5. DELIX [Concomitant]
     Indication: HYPERTENSION
     Dosage: 10 MG, QD
     Dates: start: 20130607, end: 20130610
  6. THIAMAZOLE [Concomitant]
     Indication: HYPERTHYROIDISM
     Dosage: 10 MG, QD
     Dates: start: 20130507, end: 20130610
  7. JANUMET [Concomitant]
     Indication: DIABETES MELLITUS
     Dates: start: 20130607, end: 20130610
  8. ZYLORIC [Concomitant]
     Indication: PROPHYLAXIS
     Dosage: 300 MG, QD
     Dates: start: 20130607
  9. ZYLORIC [Concomitant]
     Indication: HYPERURICAEMIA
  10. CONCOR [Concomitant]
     Indication: HYPERTENSION
     Dosage: 5 MG, BID
     Dates: start: 20130607, end: 20130610
  11. FORTUM [Concomitant]
     Indication: PYREXIA
     Dosage: 2 G, TID
     Route: 042
     Dates: start: 20130607, end: 20130610
  12. FORTUM [Concomitant]
     Indication: INFECTION
  13. MERONEM [Concomitant]
     Indication: PYREXIA
     Dosage: 1 G, TID
     Dates: start: 20130608
  14. MERONEM [Concomitant]
     Indication: INFECTION
  15. FENISTIL [Concomitant]
     Indication: PROPHYLAXIS
     Dosage: 1 DF, UNK
     Route: 042
     Dates: start: 20130607, end: 20130607
  16. RANITIC [Concomitant]
     Indication: PROPHYLAXIS
     Dosage: 1 DF, UNK
     Route: 042
     Dates: start: 20130607, end: 20130607
  17. DEXAMETHASONE [Concomitant]
     Indication: PROPHYLACTIC CHEMOTHERAPY
     Dosage: 8 MG, UNK
     Dates: start: 20130607, end: 20130610
  18. KEVATRIL [Concomitant]
     Indication: PROPHYLACTIC CHEMOTHERAPY
     Dosage: 1 MG, UNK
     Dates: start: 20130607, end: 20130610
  19. LASIX [Concomitant]
     Indication: POLYURIA
     Dosage: 40 MG, UNK
     Route: 042
     Dates: start: 20130609, end: 20130610
  20. ACTRAPID [Concomitant]
     Indication: DIABETES MELLITUS
     Dates: start: 20130607
  21. SAROTEN [Concomitant]
     Indication: SEDATION
     Dosage: 25 MG, QD
     Dates: start: 20130608, end: 20130609
  22. PANTOZOL [Concomitant]
     Indication: PROPHYLAXIS
     Dosage: 20 MG, QD
     Dates: start: 20130607, end: 20130610
  23. KLACID                                  /IRE/ [Concomitant]
     Indication: INFECTION
     Dosage: 500 MG, QD
     Route: 042
     Dates: start: 20130611
  24. VFEND [Concomitant]
     Indication: INFECTION
     Dosage: 400 MG, BID
     Route: 042
     Dates: start: 20130611
  25. VFEND [Concomitant]
     Dosage: 300 MG, BID
     Route: 042
     Dates: start: 20130612, end: 20130614
  26. AMBROSAN [Concomitant]
     Indication: INFECTION
     Dosage: 200 MG, QD
     Dates: start: 20130614

REACTIONS (39)
  - Sepsis [Fatal]
  - Pyrexia [Fatal]
  - Pneumonia [Fatal]
  - Septic shock [Fatal]
  - Acute respiratory failure [Unknown]
  - PCO2 increased [Unknown]
  - Dyspnoea [Unknown]
  - Oxygen saturation decreased [Unknown]
  - Respiratory disorder [Unknown]
  - Lymphadenopathy [Fatal]
  - Splenomegaly [Unknown]
  - Blood albumin decreased [Unknown]
  - Multi-organ failure [Unknown]
  - Vertebral column mass [Unknown]
  - Pulmonary oedema [Unknown]
  - Splenic infarction [Unknown]
  - Goitre [Unknown]
  - Pancytopenia [Unknown]
  - Platelet count decreased [Unknown]
  - Red blood cell count decreased [Unknown]
  - White blood cell count decreased [Unknown]
  - Haemoglobin decreased [Unknown]
  - Haematocrit decreased [Unknown]
  - Pseudomonas infection [Unknown]
  - Activated partial thromboplastin time prolonged [Unknown]
  - Blood alkaline phosphatase increased [Unknown]
  - Blood bicarbonate increased [Unknown]
  - Blood bilirubin increased [Unknown]
  - Blood creatinine increased [Unknown]
  - Blood lactate dehydrogenase increased [Unknown]
  - Blood phosphorus increased [Unknown]
  - Blood potassium increased [Unknown]
  - Electrophoresis protein abnormal [Unknown]
  - pH body fluid decreased [Unknown]
  - Prothrombin time shortened [Unknown]
  - C-reactive protein increased [Unknown]
  - Blood urea increased [Unknown]
  - Aspartate aminotransferase increased [Unknown]
  - Gamma-glutamyltransferase increased [Unknown]
